FAERS Safety Report 8050327-X (Version None)
Quarter: 2012Q1

REPORT INFORMATION
  Report Type: 
  Country: None (occurrence: None)
  Receive Date: 20120117
  Receipt Date: 20120112
  Transmission Date: 20120608
  Serious: Yes (Death)
  Sender: FDA-Public Use
  Company Number: JP-TEVA-2011001886

PATIENT
  Sex: Male
  Weight: 53.8 kg

DRUGS (8)
  1. SENNOSIDE [Concomitant]
  2. BENDAMUSTINE [Suspect]
     Dosage: 120 MG/M2, UID/QD
     Route: 042
     Dates: start: 20110728
  3. BENDAMUSTINE [Suspect]
     Dosage: 120 MG/M2, UID/QD
     Route: 042
     Dates: start: 20110630, end: 20110701
  4. DILTIAZEM [Concomitant]
  5. BISOPROLOL FUMARATE [Concomitant]
  6. BENDAMUSTINE [Suspect]
     Indication: EXTRANODAL MARGINAL ZONE B-CELL LYMPHOMA (MALT TYPE)
     Dosage: 120 MG/M2, UID/QD
     Route: 042
     Dates: start: 20110203, end: 20110224
  7. GRANISETRON HCL [Concomitant]
     Dates: start: 20110203, end: 20110729
  8. DEXAMETHASONE SODIUM PHOSPHATE [Concomitant]
     Dates: start: 20110203, end: 20110729

REACTIONS (4)
  - HEPATITIS C [None]
  - CARDIAC DISORDER [None]
  - CONDITION AGGRAVATED [None]
  - HEPATIC FUNCTION ABNORMAL [None]
